FAERS Safety Report 24284094 (Version 2)
Quarter: 2025Q2

REPORT INFORMATION
  Report Type: Spontaneous
  Country: DK (occurrence: DK)
  Receive Date: 20240905
  Receipt Date: 20250407
  Transmission Date: 20250717
  Serious: Yes (Congenital Anomaly, Other)
  Sender: NOVO NORDISK
  Company Number: None

PATIENT

DRUGS (2)
  1. ATORVASTATIN [Concomitant]
     Active Substance: ATORVASTATIN
     Indication: Hypercholesterolaemia
     Dosage: 40 MG, QD
     Route: 064
     Dates: start: 20231030, end: 20240110
  2. WEGOVY [Suspect]
     Active Substance: SEMAGLUTIDE
     Indication: Weight control
     Dosage: 0.5 MG, QW
     Route: 064
     Dates: start: 20230930, end: 20240103

REACTIONS (2)
  - Exomphalos [Not Recovered/Not Resolved]
  - Foetal exposure during pregnancy [Recovered/Resolved]

NARRATIVE: CASE EVENT DATE: 20231201
